FAERS Safety Report 9658884 (Version 2)
Quarter: 2013Q4

REPORT INFORMATION
  Report Type: Report from Study
  Country: JP (occurrence: JP)
  Receive Date: 20131030
  Receipt Date: 20131030
  Transmission Date: 20140711
  Serious: Yes (Death)
  Sender: FDA-Public Use
  Company Number: JP-OTSUKA-JP-2012-14709

PATIENT
  Age: 78 Year
  Sex: Male
  Weight: 54 kg

DRUGS (10)
  1. SAMSCA [Suspect]
     Indication: FLUID RETENTION
     Dosage: 15 MG MILLIGRAM(S), QPM
     Route: 048
     Dates: start: 20120301, end: 20120307
  2. BAYASPIRIN [Suspect]
     Indication: CEREBRAL INFARCTION
     Dosage: 100 MG MILLIGRAM(S), DAILY DOSE
     Route: 048
     Dates: end: 20120306
  3. HEPARIN SODIUM [Suspect]
     Indication: CEREBROVASCULAR ACCIDENT PROPHYLAXIS
     Dosage: 10 KIU IU(1000S), DAILY DOSE
     Route: 042
     Dates: start: 20120220, end: 20120228
  4. HEPARIN SODIUM [Suspect]
     Indication: CARDIAC FAILURE
  5. LANIRAPID [Concomitant]
     Indication: CARDIAC FAILURE
     Dosage: 0.05 MG MILLIGRAM(S), DAILY DOSE
     Route: 048
     Dates: end: 20120228
  6. BLOPRESS [Concomitant]
     Indication: CARDIAC FAILURE
     Dosage: 4 MG MILLIGRAM(S), DAILY DOSE
     Route: 048
     Dates: end: 20120228
  7. LASIX [Concomitant]
     Indication: CARDIAC FAILURE
     Dosage: 40 MG MILLIGRAM(S), DAILY DOSE
     Route: 048
     Dates: end: 20120228
  8. AMLODIPINE [Concomitant]
     Indication: CARDIAC FAILURE
     Dosage: 10 MG MILLIGRAM(S), DAILY DOSE
     Route: 048
     Dates: end: 20120228
  9. WARFARIN K [Concomitant]
     Indication: CARDIAC FAILURE
     Dosage: 1 MG MILLIGRAM(S), DAILY DOSE
     Route: 048
     Dates: end: 20120228
  10. NOVORAPID [Concomitant]
     Dosage: 16 IU, DAILY DOSE
     Route: 058
     Dates: end: 20120228

REACTIONS (2)
  - Duodenal ulcer haemorrhage [Fatal]
  - Shock haemorrhagic [Fatal]
